FAERS Safety Report 8080168-9 (Version None)
Quarter: 2012Q1

REPORT INFORMATION
  Report Type: 
  Country: None (occurrence: None)
  Receive Date: 20120130
  Receipt Date: 20120120
  Transmission Date: 20120608
  Serious: Yes (Hospitalization, Other)
  Sender: FDA-Public Use
  Company Number: US-BAYER-2011-029223

PATIENT
  Age: 20 Year
  Sex: Female

DRUGS (5)
  1. DROSPIRENONE AND ETHINYL ESTRADIOL [Suspect]
     Indication: CONTRACEPTION
     Dosage: UNK
     Dates: start: 20081101
  2. VITAMIN B6 [Concomitant]
  3. MULTI-VITAMINS [Concomitant]
  4. ANTIHISTAMINES FOR SYSTEMIC USE [Concomitant]
  5. YASMIN [Suspect]
     Indication: CONTRACEPTION
     Dosage: UNK
     Dates: start: 20050930, end: 20071214

REACTIONS (6)
  - EMOTIONAL DISTRESS [None]
  - GALLBLADDER DISORDER [None]
  - CHOLECYSTITIS [None]
  - PAIN [None]
  - ANXIETY [None]
  - INJURY [None]
